FAERS Safety Report 4662979-2 (Version None)
Quarter: 2005Q2

REPORT INFORMATION
  Report Type: 
  Country: None (occurrence: None)
  Receive Date: 20050513
  Receipt Date: 20050429
  Transmission Date: 20051028
  Serious: Yes (Life-Threatening, Hospitalization)
  Sender: FDA-Public Use
  Company Number: 02100-JPN-05-0191

PATIENT
  Age: 86 Year
  Sex: Female

DRUGS (9)
  1. CILOSTAZOL [Suspect]
     Indication: LACUNAR INFARCTION
     Dosage: 100 MG
     Route: 048
     Dates: start: 20050114, end: 20050223
  2. DONEPEZIL HCL [Suspect]
     Indication: DEMENTIA ALZHEIMER'S TYPE
     Dosage: 3MG/5MG/3 MG
     Route: 048
     Dates: start: 20050114, end: 20050127
  3. DONEPEZIL HCL [Suspect]
     Indication: DEMENTIA ALZHEIMER'S TYPE
     Dosage: 3MG/5MG/3 MG
     Route: 048
     Dates: start: 20050128, end: 20050128
  4. DONEPEZIL HCL [Suspect]
     Indication: DEMENTIA ALZHEIMER'S TYPE
     Dosage: 3MG/5MG/3 MG
     Route: 048
     Dates: start: 20050221, end: 20050223
  5. FLUVASTATIN SODIUM [Suspect]
     Indication: HYPERCHOLESTEROLAEMIA
     Dosage: 20 MG
     Route: 048
     Dates: start: 20050114, end: 20050223
  6. AMLODIPINE BESYLATE [Concomitant]
  7. TRANDOLAPRIL [Concomitant]
  8. IPRIFLAVONE [Concomitant]
  9. FERROUS CITRATE [Concomitant]

REACTIONS (6)
  - ARRHYTHMIA [None]
  - HYPOGLYCAEMIC COMA [None]
  - INSULINOMA [None]
  - LACUNAR INFARCTION [None]
  - MEMORY IMPAIRMENT [None]
  - NAUSEA [None]
